FAERS Safety Report 12504455 (Version 5)
Quarter: 2016Q3

REPORT INFORMATION
  Report Type: Report from Study
  Country: BR (occurrence: BR)
  Receive Date: 20160628
  Receipt Date: 20160829
  Transmission Date: 20161109
  Serious: Yes (Other)
  Sender: FDA-Public Use
  Company Number: PHHY2016BR085695

PATIENT
  Sex: Female
  Weight: 64 kg

DRUGS (2)
  1. ATACAND [Concomitant]
     Active Substance: CANDESARTAN CILEXETIL
     Indication: HYPERTENSION
     Dosage: 8 MG, QD
     Route: 048
  2. GILENYA [Suspect]
     Active Substance: FINGOLIMOD HYDROCHLORIDE
     Indication: MULTIPLE SCLEROSIS
     Dosage: 0.5 MG, QD
     Route: 048
     Dates: start: 20151217, end: 201605

REACTIONS (4)
  - White blood cell count decreased [Recovered/Resolved]
  - Gait disturbance [Unknown]
  - Decreased immune responsiveness [Recovered/Resolved]
  - Lymphocyte count decreased [Recovered/Resolved]
